FAERS Safety Report 7337764-3 (Version None)
Quarter: 2011Q1

REPORT INFORMATION
  Report Type: 
  Country: None (occurrence: None)
  Receive Date: 20110308
  Receipt Date: 20110301
  Transmission Date: 20110831
  Serious: Yes (Other)
  Sender: FDA-Public Use
  Company Number: US-B.I. PHARMACEUTICALS,INC./RIDGEFIELD-2011-DE-01446GD

PATIENT
  Sex: Female

DRUGS (18)
  1. CYMBALTA [Suspect]
     Indication: NEURALGIA
  2. FLEXERIL [Suspect]
     Indication: RESTLESS LEGS SYNDROME
     Dosage: 20 MG
  3. NOLVADEX [Concomitant]
     Dosage: 20 MG
  4. LIPITOR [Concomitant]
     Dosage: 40 MG
  5. WELLBUTRIN XL [Suspect]
     Indication: DEPRESSION
     Dosage: 300 MG
  6. HYDROCHLOROTHIAZIDE [Suspect]
     Indication: OEDEMA PERIPHERAL
     Dosage: 25 MG
  7. LYRICA [Suspect]
     Indication: NEURALGIA
     Dosage: 150 MG
  8. CYMBALTA [Suspect]
     Indication: DEPRESSION
     Dosage: 60 MG
  9. CALCIUM CITRATE+VITAMIN D [Concomitant]
     Indication: OSTEOPOROSIS PROPHYLAXIS
     Dosage: 1890 MG CALCIUM
  10. DURAGESIC-50 [Suspect]
     Indication: BACK PAIN
     Dosage: 75 MCG/H
     Route: 062
  11. DILAUDID [Suspect]
     Indication: BACK PAIN
     Dosage: 16 MG
  12. MOBIC [Concomitant]
     Indication: FIBROMYALGIA
     Dosage: 15 MG
  13. CLONIDINE [Suspect]
     Indication: NIGHT SWEATS
  14. KLONOPIN [Suspect]
     Indication: RESTLESS LEGS SYNDROME
     Dosage: 0.5 MG
  15. MULTI-VITAMINS [Concomitant]
     Indication: ROUTINE HEALTH MAINTENANCE
     Dosage: 1 ANZ
     Route: 048
  16. CLONIDINE [Suspect]
     Indication: HOT FLUSH
     Dosage: 0.1 MG
  17. ACIPHEX [Concomitant]
     Indication: GASTROOESOPHAGEAL REFLUX DISEASE
     Dosage: 20 MG
  18. SYNTHROID [Concomitant]
     Indication: HYPOTHYROIDISM
     Dosage: 0.112 MG

REACTIONS (3)
  - SOMNOLENCE [None]
  - FALL [None]
  - ORTHOSTATIC HYPOTENSION [None]
